FAERS Safety Report 10109127 (Version 2)
Quarter: 2014Q2

REPORT INFORMATION
  Report Type: Report from Study
  Country: HU (occurrence: HU)
  Receive Date: 20140425
  Receipt Date: 20140425
  Transmission Date: 20141212
  Serious: Yes (Hospitalization)
  Sender: FDA-Public Use
  Company Number: HU-MPIJNJ-2014JNJ000018

PATIENT
  Sex: 0

DRUGS (1)
  1. VELCADE [Suspect]
     Indication: PLASMA CELL MYELOMA
     Dosage: UNK
     Route: 065
     Dates: start: 20131111

REACTIONS (3)
  - Hospitalisation [Unknown]
  - Eyelid oedema [Recovered/Resolved]
  - Rash [Not Recovered/Not Resolved]
